FAERS Safety Report 6405268-8 (Version None)
Quarter: 2009Q4

REPORT INFORMATION
  Report Type: 
  Country: None (occurrence: None)
  Receive Date: 20091014
  Receipt Date: 20090930
  Transmission Date: 20100525
  Serious: Yes (Death)
  Sender: FDA-Public Use
  Company Number: 2009AC000044

PATIENT
  Sex: Male

DRUGS (3)
  1. DIGOXIN [Suspect]
     Dosage: 0.125 MG; QD; PO
     Route: 048
  2. COUMADIN [Concomitant]
  3. OMEPRAZOLE [Concomitant]

REACTIONS (3)
  - ECONOMIC PROBLEM [None]
  - FAILURE TO THRIVE [None]
  - MULTIPLE INJURIES [None]
